FAERS Safety Report 5130409-2 (Version None)
Quarter: 2006Q4

REPORT INFORMATION
  Report Type: 
  Country: None (occurrence: None)
  Receive Date: 20061013
  Receipt Date: 20060927
  Transmission Date: 20070319
  Serious: Yes (Hospitalization, Other)
  Sender: FDA-Public Use
  Company Number: US200609007082

PATIENT
  Sex: Female

DRUGS (2)
  1. FORTEO [Suspect]
     Indication: OSTEOPOROSIS
     Dosage: 3 ML
     Dates: start: 20060923, end: 20060923
  2. FORTEO [Suspect]
     Indication: OSTEOPOROSIS
     Dosage: 3 ML
     Dates: start: 20051201

REACTIONS (15)
  - ACCIDENTAL OVERDOSE [None]
  - CONDITION AGGRAVATED [None]
  - CONFUSIONAL STATE [None]
  - DEHYDRATION [None]
  - DISORIENTATION [None]
  - DRY MOUTH [None]
  - HYPERHIDROSIS [None]
  - HYPOTENSION [None]
  - INJECTION SITE BRUISING [None]
  - INJECTION SITE PAIN [None]
  - LETHARGY [None]
  - MEDICATION ERROR [None]
  - MONARTHRITIS [None]
  - THIRST [None]
  - WRONG TECHNIQUE IN DRUG USAGE PROCESS [None]
